FAERS Safety Report 13060704 (Version 2)
Quarter: 2017Q1

REPORT INFORMATION
  Report Type: Spontaneous
  Country: US (occurrence: US)
  Receive Date: 20161225
  Receipt Date: 20170119
  Transmission Date: 20170428
  Serious: No
  Sender: FDA-Public Use
  Company Number: US-ASTRAZENECA-2016SF29878

PATIENT
  Sex: Male
  Weight: 90.7 kg

DRUGS (1)
  1. BYDUREON [Suspect]
     Active Substance: EXENATIDE
     Indication: DIABETES MELLITUS
     Route: 058

REACTIONS (5)
  - Intentional product misuse [Unknown]
  - Device malfunction [Not Recovered/Not Resolved]
  - Incorrect dose administered [Unknown]
  - Needle issue [Unknown]
  - Glycosylated haemoglobin increased [Not Recovered/Not Resolved]
